FAERS Safety Report 7036434-9 (Version None)
Quarter: 2010Q4

REPORT INFORMATION
  Report Type: 
  Country: None (occurrence: None)
  Receive Date: 20101010
  Receipt Date: 20101007
  Transmission Date: 20110411
  Serious: Yes (Other)
  Sender: FDA-Public Use
  Company Number: GB-BRISTOL-MYERS SQUIBB COMPANY-15323934

PATIENT
  Age: 15 Year
  Sex: Female
  Weight: 70 kg

DRUGS (2)
  1. ARIPIPRAZOLE [Suspect]
     Indication: SCHIZOPHRENIA
     Dosage: 30APR-18MAY:18D,19MAY-26MAY:7D DOSE WAS INCREASED
     Route: 048
     Dates: start: 20100430, end: 20100526
  2. PROMETHAZINE [Concomitant]
     Indication: INSOMNIA
     Dates: start: 20100427, end: 20100429

REACTIONS (7)
  - ABDOMINAL PAIN LOWER [None]
  - CARDIAC DISORDER [None]
  - CHEST PAIN [None]
  - DIZZINESS [None]
  - HEART RATE IRREGULAR [None]
  - NAUSEA [None]
  - NECK PAIN [None]
